FAERS Safety Report 6802934-7 (Version None)
Quarter: 2010Q2

REPORT INFORMATION
  Report Type: 
  Country: None (occurrence: None)
  Receive Date: 20100628
  Receipt Date: 20100524
  Transmission Date: 20101027
  Serious: Yes (Hospitalization, Other)
  Sender: FDA-Public Use
  Company Number: PHEH2009US00450

PATIENT
  Sex: Male
  Weight: 94.331 kg

DRUGS (17)
  1. ZELNORM [Suspect]
  2. DECADRON [Concomitant]
  3. ROCEPHIN [Concomitant]
  4. AVANDIA [Concomitant]
     Dosage: 8 MG, UNK
  5. LOTREL [Concomitant]
  6. BENICAR [Concomitant]
     Dosage: 4 MCI, UNK
  7. CARDIZEM [Concomitant]
  8. ARICEPT [Concomitant]
  9. NEXIUM [Concomitant]
  10. NOVOLOG [Concomitant]
  11. MUCINEX [Concomitant]
  12. ATROVENT [Concomitant]
  13. ZOCOR [Concomitant]
  14. SYMBYAX [Concomitant]
  15. LEVAQUIN [Concomitant]
  16. SIMVASTATIN [Concomitant]
  17. PROTONIX [Concomitant]

REACTIONS (20)
  - ANGINA PECTORIS [None]
  - BRONCHITIS [None]
  - CARDIOMEGALY [None]
  - CAROTID ARTERY STENOSIS [None]
  - CEREBRAL INFARCTION [None]
  - CHRONIC OBSTRUCTIVE PULMONARY DISEASE [None]
  - CORONARY ARTERY BYPASS [None]
  - DIARRHOEA [None]
  - DYSPHAGIA [None]
  - EMOTIONAL DISORDER [None]
  - EMPHYSEMA [None]
  - ENCEPHALOPATHY [None]
  - HAEMATOCRIT DECREASED [None]
  - HYPERLIPIDAEMIA [None]
  - HYPERNATRAEMIA [None]
  - HYPERTENSION [None]
  - INJURY [None]
  - MENTAL STATUS CHANGES [None]
  - PLEURAL EFFUSION [None]
  - RED CELL DISTRIBUTION WIDTH INCREASED [None]
